FAERS Safety Report 7058557-0 (Version None)
Quarter: 2010Q4

REPORT INFORMATION
  Report Type: 
  Country: None (occurrence: None)
  Receive Date: 20101022
  Receipt Date: 20101015
  Transmission Date: 20110411
  Serious: Yes (Death, Hospitalization)
  Sender: FDA-Public Use
  Company Number: A0810781A

PATIENT
  Age: 51 Year
  Sex: Male

DRUGS (6)
  1. AVANDAMET [Suspect]
     Route: 048
     Dates: start: 20021101, end: 20070731
  2. PRAVASTATIN [Concomitant]
  3. LASIX [Concomitant]
  4. NOVOLIN R [Concomitant]
  5. ALLOPURINOL [Concomitant]
  6. GABAPENTIN [Concomitant]

REACTIONS (5)
  - ACUTE MYOCARDIAL INFARCTION [None]
  - CARDIAC FAILURE CONGESTIVE [None]
  - CEREBROVASCULAR ACCIDENT [None]
  - CORONARY ARTERY DISEASE [None]
  - DEATH [None]
